FAERS Safety Report 10371201 (Version 1)
Quarter: 2014Q1

REPORT INFORMATION
  Report Type: Spontaneous
  Country: US (occurrence: None)
  Receive Date: 20140306
  Receipt Date: 20140306
  Transmission Date: 20141002
  Serious: Yes (Other)
  Sender: FDA-Public Use
  Company Number: 163-21880-13073671

PATIENT
  Age: 61 Year
  Sex: Female
  Weight: 108 kg

DRUGS (10)
  1. REVLIMID (LENALIDOMIDE) (2.5 MILLIGRAM, CAPSULES) [Suspect]
     Indication: PLASMA CELL MYELOMA
     Route: 048
     Dates: start: 201212
  2. PROCRIT (ERYTHROPOIETIN) (UNKNOWN) [Concomitant]
  3. CENTRUM COMPLETE MULTIVITAMINS (CENTRUM) (TABLETS) [Concomitant]
  4. DEXAMETHASONE (DEXAMETHASONE) (TABLETS) [Concomitant]
  5. FUROSEMIDE (FUROSEMIDE) (TABLETS) [Concomitant]
  6. GABAPENTIN (GABAPENTIN) (TABLETS) [Concomitant]
  7. LISINOPRIL (LISINOPRIL) (TABLETS) [Concomitant]
  8. ALLOPURINOL (ALLOPURINOL) (TABLETS) [Concomitant]
  9. XARELTO (RIVAROXABAN) (TABLETS) [Concomitant]
  10. ASPIRIN (ACETYLSALICYLIC ACID) (ENTERIC-COATED TABLETS) [Concomitant]

REACTIONS (1)
  - Thrombosis [None]
